FAERS Safety Report 7633276-8 (Version None)
Quarter: 2011Q3

REPORT INFORMATION
  Report Type: 
  Country: None (occurrence: None)
  Receive Date: 20110718
  Receipt Date: 20110704
  Transmission Date: 20111222
  Serious: Yes (Hospitalization)
  Sender: FDA-Public Use
  Company Number: 2011AP001345

PATIENT
  Age: 48 Year
  Sex: Female

DRUGS (5)
  1. VALPROIC ACID [Concomitant]
  2. LITHIUM CARBONATE [Suspect]
     Indication: PRODUCT USED FOR UNKNOWN INDICATION
  3. SALICYLATES NOS [Concomitant]
  4. PHENYTOIN SODIUM CAP [Concomitant]
  5. ACETAMINOPHEN [Concomitant]

REACTIONS (13)
  - MUSCLE RIGIDITY [None]
  - NEUROTOXICITY [None]
  - HYPERREFLEXIA [None]
  - SELF-MEDICATION [None]
  - MYOCLONUS [None]
  - PROTEIN URINE [None]
  - BLOOD CREATINE PHOSPHOKINASE INCREASED [None]
  - NEUTROPHIL COUNT INCREASED [None]
  - TREMOR [None]
  - MENTAL STATUS CHANGES [None]
  - HYPOKINESIA [None]
  - TOXICITY TO VARIOUS AGENTS [None]
  - TACHYCARDIA [None]
